FAERS Safety Report 4928889-8 (Version None)
Quarter: 2006Q1

REPORT INFORMATION
  Report Type: 
  Country: None (occurrence: None)
  Receive Date: 20060223
  Receipt Date: 20060210
  Transmission Date: 20060701
  Serious: Yes (Death)
  Sender: FDA-Public Use
  Company Number: 2006-US-00676

PATIENT
  Age: 90 Year
  Sex: Female

DRUGS (1)
  1. CLOZAPINE [Suspect]
     Indication: BIPOLAR DISORDER
     Dosage: 200 MG, QD, ORAL
     Route: 048
     Dates: start: 20000101, end: 20060101

REACTIONS (1)
  - RESPIRATORY FAILURE [None]
